FAERS Safety Report 24675777 (Version 1)
Quarter: 2024Q4

REPORT INFORMATION
  Report Type: Spontaneous
  Country: FR (occurrence: FR)
  Receive Date: 20241128
  Receipt Date: 20241128
  Transmission Date: 20250114
  Serious: Yes (Hospitalization)
  Sender: MERCK
  Company Number: None

PATIENT
  Age: 26 Year
  Sex: Male

DRUGS (4)
  1. ERTAPENEM SODIUM [Suspect]
     Active Substance: ERTAPENEM SODIUM
     Indication: Pneumonia aspiration
     Dosage: 1 GRAM, QD
     Route: 042
     Dates: start: 20211008, end: 20211011
  2. VIMPAT [Concomitant]
     Active Substance: LACOSAMIDE
  3. LAMICTAL [Concomitant]
     Active Substance: LAMOTRIGINE
  4. VALPROIC ACID [Concomitant]
     Active Substance: VALPROIC ACID

REACTIONS (2)
  - Drug level increased [Recovered/Resolved]
  - Confusional state [Recovered/Resolved]

NARRATIVE: CASE EVENT DATE: 20211011
